FAERS Safety Report 16057780 (Version 1)
Quarter: 2019Q1

REPORT INFORMATION
  Report Type: Spontaneous
  Country: CA (occurrence: CA)
  Receive Date: 20190311
  Receipt Date: 20190311
  Transmission Date: 20190418
  Serious: Yes (Hospitalization, Other)
  Sender: FDA-Public Use
  Company Number: CA-APOTEX-2019AP009154

PATIENT
  Age: 77 Year
  Sex: Male

DRUGS (22)
  1. ARIPIPRAZOLE. [Suspect]
     Active Substance: ARIPIPRAZOLE
     Dosage: UNK PRN (0-62.5 MG)
     Route: 065
  2. TRAZODONE [Suspect]
     Active Substance: TRAZODONE HYDROCHLORIDE
     Indication: AGITATION
     Dosage: UNK FROM 0 TO 25 MG DAY PER DAY
     Route: 065
  3. TRAZODONE [Suspect]
     Active Substance: TRAZODONE HYDROCHLORIDE
     Indication: NEUROPSYCHIATRIC SYMPTOMS
     Dosage: UNK PRN (12.5 MG, MAXIMUM 150 MG DAY PER DAY)
     Route: 065
  4. AMLODIPINE [Concomitant]
     Active Substance: AMLODIPINE BESYLATE
     Indication: PRODUCT USED FOR UNKNOWN INDICATION
     Dosage: 5 MG, QD
     Route: 065
  5. RISPERIDONE. [Suspect]
     Active Substance: RISPERIDONE
     Dosage: UNK PRN (0-62.5 MG)
     Route: 065
  6. IBUPROFEN. [Concomitant]
     Active Substance: IBUPROFEN
     Indication: PRODUCT USED FOR UNKNOWN INDICATION
     Dosage: UNK PRN
     Route: 065
  7. ARIPIPRAZOLE. [Suspect]
     Active Substance: ARIPIPRAZOLE
     Indication: NEUROPSYCHIATRIC SYMPTOMS
     Dosage: 12.5 MG, QD
     Route: 065
  8. CARBAMAZEPINE. [Suspect]
     Active Substance: CARBAMAZEPINE
     Indication: NEUROPSYCHIATRIC SYMPTOMS
     Dosage: 100 MG, BID
     Route: 065
  9. DONEPEZIL. [Concomitant]
     Active Substance: DONEPEZIL
     Indication: DEMENTIA ALZHEIMER^S TYPE
     Dosage: 5 MG, QD
     Route: 065
  10. HALOPERIDOL. [Concomitant]
     Active Substance: HALOPERIDOL
     Indication: NEUROPSYCHIATRIC SYMPTOMS
     Dosage: 0.5 MG, UNK PRN UPTO 1.5 MG PER DAY
     Route: 065
  11. RISPERIDONE. [Suspect]
     Active Substance: RISPERIDONE
     Dosage: 1.25 MG, QD
     Route: 065
  12. LANSOPRAZOLE. [Concomitant]
     Active Substance: LANSOPRAZOLE
     Indication: PRODUCT USED FOR UNKNOWN INDICATION
     Dosage: 30 MG, QD
     Route: 065
  13. ACETAMINOPHEN. [Concomitant]
     Active Substance: ACETAMINOPHEN
     Indication: CHEST PAIN
     Dosage: UNK
     Route: 065
  14. ACETAMINOPHEN. [Concomitant]
     Active Substance: ACETAMINOPHEN
     Indication: NECK PAIN
     Dosage: 500 MG, TID
     Route: 065
  15. CITALOPRAM [Suspect]
     Active Substance: CITALOPRAM HYDROBROMIDE
     Indication: NEUROPSYCHIATRIC SYMPTOMS
     Dosage: 20 MG, QD
     Route: 065
  16. DONEPEZIL. [Concomitant]
     Active Substance: DONEPEZIL
     Dosage: 10 MG, QD
     Route: 065
  17. ZOPICLONE [Concomitant]
     Active Substance: ZOPICLONE
     Indication: PRODUCT USED FOR UNKNOWN INDICATION
     Dosage: UNK PRN
     Route: 065
  18. RISPERIDONE. [Suspect]
     Active Substance: RISPERIDONE
     Dosage: 2 MG, QD
     Route: 065
  19. MIRTAZAPINE. [Concomitant]
     Active Substance: MIRTAZAPINE
     Indication: DEMENTIA ALZHEIMER^S TYPE
     Dosage: 15 MG, QD (NIGHTLY)
     Route: 065
  20. MULTIVITAMINS                      /00116001/ [Concomitant]
     Active Substance: VITAMINS
     Indication: PRODUCT USED FOR UNKNOWN INDICATION
     Dosage: UNK, QD
     Route: 065
  21. RISPERIDONE. [Suspect]
     Active Substance: RISPERIDONE
     Indication: AGITATION
     Dosage: UNK 0.25 MG PRN UP TO 2 DOSES PER DAY
     Route: 065
  22. RISPERIDONE. [Suspect]
     Active Substance: RISPERIDONE
     Indication: NEUROPSYCHIATRIC SYMPTOMS
     Dosage: 1 MG, QD
     Route: 065

REACTIONS (9)
  - Depressed level of consciousness [Unknown]
  - Head injury [Unknown]
  - Gait disturbance [Unknown]
  - Agitation [Recovering/Resolving]
  - Tardive dyskinesia [Unknown]
  - Muscle rigidity [Unknown]
  - Fall [Unknown]
  - Drug ineffective [Unknown]
  - Drug effect incomplete [Unknown]
